FAERS Safety Report 10982733 (Version 1)
Quarter: 2015Q2

REPORT INFORMATION
  Report Type: Spontaneous
  Country: US (occurrence: None)
  Receive Date: 20150402
  Receipt Date: 20150402
  Transmission Date: 20150821
  Serious: No
  Sender: FDA-Public Use
  Company Number: None

PATIENT
  Age: 68 Year
  Sex: Male
  Weight: 89.8 kg

DRUGS (1)
  1. VIEKIRA PAK [Suspect]
     Active Substance: DASABUVIR\OMBITASVIR\PARITAPREVIR\RITONAVIR
     Indication: HEPATITIS C
     Route: 048
     Dates: start: 20150211, end: 20150305

REACTIONS (7)
  - Swollen tongue [None]
  - Arthralgia [None]
  - Rash [None]
  - Musculoskeletal pain [None]
  - Rash erythematous [None]
  - Condition aggravated [None]
  - Fatigue [None]

NARRATIVE: CASE EVENT DATE: 20150305
